FAERS Safety Report 6834894-7 (Version None)
Quarter: 2010Q3

REPORT INFORMATION
  Report Type: 
  Country: None (occurrence: None)
  Receive Date: 20100712
  Receipt Date: 20070416
  Transmission Date: 20110219
  Serious: No
  Sender: FDA-Public Use
  Company Number: US-PFIZER INC-2007030775

PATIENT
  Sex: Female
  Weight: 72.57 kg

DRUGS (3)
  1. CHANTIX [Suspect]
     Indication: SMOKING CESSATION THERAPY
     Route: 048
     Dates: start: 20070414, end: 20070415
  2. NEXIUM [Concomitant]
  3. ALLEGRA D 24 HOUR [Concomitant]

REACTIONS (2)
  - DIZZINESS [None]
  - SEDATION [None]
